FAERS Safety Report 5832760-7 (Version None)
Quarter: 2008Q3

REPORT INFORMATION
  Report Type: 
  Country: None (occurrence: None)
  Receive Date: 20080804
  Receipt Date: 20080723
  Transmission Date: 20090109
  Serious: Yes (Life-Threatening, Hospitalization)
  Sender: FDA-Public Use
  Company Number: FR-PFIZER INC-2008061652

PATIENT
  Age: 78 Year
  Sex: Male

DRUGS (8)
  1. DALACINE IV [Suspect]
     Indication: INFECTION
     Route: 042
     Dates: start: 20080104, end: 20080202
  2. CLAFORAN [Concomitant]
     Indication: INFECTION
     Route: 042
     Dates: start: 20071227, end: 20080202
  3. RIFADIN [Concomitant]
     Indication: INFECTION
     Route: 042
     Dates: start: 20080111, end: 20080202
  4. NEXIUM [Concomitant]
     Indication: DYSPEPSIA
     Dosage: DAILY DOSE:40MG
     Route: 048
     Dates: start: 20071223, end: 20080202
  5. CALCIPARINE [Concomitant]
     Route: 058
     Dates: start: 20071231, end: 20080201
  6. GENTAMICIN [Concomitant]
     Indication: INFECTION
  7. TRAMADOL HCL [Concomitant]
     Indication: PAIN
     Route: 048
     Dates: start: 20071223, end: 20080202
  8. LASIX [Concomitant]
     Indication: RENAL FAILURE
     Route: 042
     Dates: start: 20071224, end: 20080201

REACTIONS (1)
  - DRUG RASH WITH EOSINOPHILIA AND SYSTEMIC SYMPTOMS [None]
